FAERS Safety Report 21396181 (Version 1)
Quarter: 2022Q3

REPORT INFORMATION
  Report Type: Spontaneous
  Country: US (occurrence: US)
  Receive Date: 20220930
  Receipt Date: 20220930
  Transmission Date: 20221026
  Serious: No
  Sender: FDA-Public Use
  Company Number: US-DSJP-DSU-2022-135218AA

PATIENT
  Age: 39 Year
  Sex: Male

DRUGS (1)
  1. ENHERTU [Suspect]
     Active Substance: FAM-TRASTUZUMAB DERUXTECAN-NXKI
     Indication: Gastric cancer
     Dosage: 6.4 MG/KG
     Route: 042

REACTIONS (2)
  - Vision blurred [Unknown]
  - Illness [Unknown]

NARRATIVE: CASE EVENT DATE: 20220927
